FAERS Safety Report 6982347-8 (Version None)
Quarter: 2010Q3

REPORT INFORMATION
  Report Type: 
  Country: None (occurrence: None)
  Receive Date: 20100909
  Receipt Date: 20090924
  Transmission Date: 20110219
  Serious: Yes (Hospitalization)
  Sender: FDA-Public Use
  Company Number: 2009AP003901

PATIENT
  Sex: Male

DRUGS (1)
  1. DILT-CD [Suspect]
     Dosage: PO
     Route: 048

REACTIONS (1)
  - REACTION TO DRUG EXCIPIENTS [None]
